FAERS Safety Report 15896749 (Version 1)
Quarter: 2019Q1

REPORT INFORMATION
  Report Type: Spontaneous
  Country: ES (occurrence: ES)
  Receive Date: 20190131
  Receipt Date: 20190131
  Transmission Date: 20190417
  Serious: Yes (Hospitalization, Other)
  Sender: FDA-Public Use
  Company Number: ES-PFIZER INC-2019035206

PATIENT
  Age: 72 Year
  Sex: Female
  Weight: 74 kg

DRUGS (18)
  1. SEVREDOL [Suspect]
     Active Substance: MORPHINE
     Indication: BACK PAIN
     Dosage: 10 MG, AS NEEDED (SEVREDOL 10: 1 TABLET IN CASE OF SEVERE PAINS DESPITE THE TREATMENT WITH NEURONTI)
     Route: 048
     Dates: start: 20181221
  2. PARACETAMOL [Concomitant]
     Active Substance: ACETAMINOPHEN
  3. BINOCRIT [Concomitant]
     Active Substance: ERYTHROPOIETIN
     Route: 058
  4. PANTOPRAZOLE [Concomitant]
     Active Substance: PANTOPRAZOLE
  5. ESCITALOPRAM [Suspect]
     Active Substance: ESCITALOPRAM OXALATE
     Indication: DEPRESSION
     Dosage: 15 MG, 1X/DAY
     Route: 048
     Dates: start: 20181221, end: 20181222
  6. ZOVIRAX [Concomitant]
     Active Substance: ACYCLOVIR
  7. ZYLORIC [Concomitant]
     Active Substance: ALLOPURINOL
  8. CLEXANE [Concomitant]
     Active Substance: ENOXAPARIN SODIUM
     Route: 058
  9. MYCOSTATIN [Concomitant]
     Active Substance: NYSTATIN
  10. BOREA [Concomitant]
     Active Substance: MEGESTROL ACETATE
  11. NEURONTIN [Suspect]
     Active Substance: GABAPENTIN
     Dosage: 300 MG, 3X/DAY (1 TABLET WITH BREAKFAST, DINNER AND SUPPER)
     Route: 048
     Dates: start: 201509
  12. SEGURIL [Concomitant]
     Active Substance: FUROSEMIDE
  13. NATECAL D [Concomitant]
     Active Substance: CALCIUM CARBONATE\CHOLECALCIFEROL
  14. SERETIDE [Concomitant]
     Active Substance: FLUTICASONE PROPIONATE\SALMETEROL XINAFOATE
  15. TRANKIMAZIN [Suspect]
     Active Substance: ALPRAZOLAM
     Indication: DEPRESSION
     Dosage: 1 MG, 1X/DAY (EVERY 24 HOURS, 1 TABLET A DAY 30 MINUTES BEFORE GOING TO BED)
     Route: 048
     Dates: start: 201706
  16. HIDROXIL B12 B6 B1 [Concomitant]
     Active Substance: HYDROXOCOBALAMIN\PYRIDOXINE HYDROCHLORIDE\THIAMINE HYDROCHLORIDE
  17. DUROGESIC [Suspect]
     Active Substance: FENTANYL
     Indication: PAIN
     Dosage: 150 UG, UNK (1 TRANSDERMAL PATCH OF 100 UG AND THE OTHER OF 50 UG EVERY 72 HOURS)
     Route: 062
     Dates: start: 20181221
  18. NOLOTIL [METAMIZOLE MAGNESIUM] [Concomitant]
     Active Substance: METAMIZOLE MAGNESIUM

REACTIONS (2)
  - Respiratory depression [Recovered/Resolved]
  - Depressed level of consciousness [Recovered/Resolved]

NARRATIVE: CASE EVENT DATE: 20181222
